FAERS Safety Report 6972657-2 (Version None)
Quarter: 2010Q3

REPORT INFORMATION
  Report Type: 
  Country: None (occurrence: None)
  Receive Date: 20100909
  Receipt Date: 20100902
  Transmission Date: 20110219
  Serious: Yes (Other)
  Sender: FDA-Public Use
  Company Number: BR-PFIZER INC-2010111088

PATIENT
  Age: 46 Year
  Sex: Female
  Weight: 55 kg

DRUGS (2)
  1. DEPO-PROVERA [Suspect]
     Indication: CONTRACEPTION
     Dosage: 150 MG, EVERY 3 MONTHS
     Route: 030
     Dates: start: 20100710
  2. DEPO-PROVERA [Suspect]
     Indication: MENSTRUATION IRREGULAR

REACTIONS (7)
  - ABDOMINAL DISTENSION [None]
  - AMENORRHOEA [None]
  - DEPRESSED MOOD [None]
  - INAPPROPRIATE SCHEDULE OF DRUG ADMINISTRATION [None]
  - METRORRHAGIA [None]
  - SUICIDAL IDEATION [None]
  - WEIGHT INCREASED [None]
